FAERS Safety Report 10733109 (Version 2)
Quarter: 2015Q1

REPORT INFORMATION
  Report Type: Report from Study
  Country: BR (occurrence: BR)
  Receive Date: 20150123
  Receipt Date: 20150127
  Transmission Date: 20150721
  Serious: Yes (Other)
  Sender: FDA-Public Use
  Company Number: BR-ABBVIE-15K-020-1334713-00

PATIENT
  Age: 45 Year
  Sex: Female
  Weight: 80 kg

DRUGS (7)
  1. METHOTREXATE [Concomitant]
     Active Substance: METHOTREXATE
     Indication: ARTHRITIS
     Route: 048
     Dates: start: 201401
  2. PREDNISONE/ HYDROXYCHLOROQUINE/ FAMOTIDINE [Concomitant]
     Indication: ARTHRITIS
     Route: 048
     Dates: start: 2003
  3. PREDNISONE. [Suspect]
     Active Substance: PREDNISONE
     Indication: PRODUCT USED FOR UNKNOWN INDICATION
     Route: 065
  4. HUMIRA [Suspect]
     Active Substance: ADALIMUMAB
     Indication: RHEUMATOID ARTHRITIS
     Route: 058
  5. FOLIC ACID. [Concomitant]
     Active Substance: FOLIC ACID
     Indication: VITAMIN SUPPLEMENTATION
     Route: 048
     Dates: start: 201401
  6. NAPROXEN. [Concomitant]
     Active Substance: NAPROXEN
     Indication: ARTHRITIS
     Route: 048
  7. OMEPRAZOLE. [Concomitant]
     Active Substance: OMEPRAZOLE
     Indication: ABDOMINAL PAIN UPPER
     Route: 048
     Dates: start: 2003

REACTIONS (11)
  - Upper limb fracture [Recovering/Resolving]
  - Injection site pruritus [Recovered/Resolved]
  - Hip fracture [Recovering/Resolving]
  - Incorrect product storage [Unknown]
  - Weight increased [Not Recovered/Not Resolved]
  - Arthralgia [Recovering/Resolving]
  - Accident [Recovering/Resolving]
  - Injection site erythema [Recovered/Resolved]
  - Mass [Unknown]
  - Haematoma [Unknown]
  - Injection site hypersensitivity [Unknown]

NARRATIVE: CASE EVENT DATE: 201407
